FAERS Safety Report 6997046-6 (Version None)
Quarter: 2010Q3

REPORT INFORMATION
  Report Type: 
  Country: None (occurrence: None)
  Receive Date: 20100918
  Receipt Date: 20091029
  Transmission Date: 20110219
  Serious: Yes (Other)
  Sender: FDA-Public Use
  Company Number: US-WYE-H10818309

PATIENT
  Sex: Female
  Weight: 70.37 kg

DRUGS (4)
  1. PRISTIQ [Suspect]
     Indication: DEPRESSION
     Route: 048
     Dates: start: 20090601, end: 20090801
  2. TOPROL-XL [Concomitant]
     Indication: HYPERTENSION
  3. LOVAZA [Concomitant]
     Indication: BLOOD CHOLESTEROL INCREASED
     Dosage: UNKNOWN
  4. DIOVAN [Concomitant]
     Indication: HYPERTENSION
     Dosage: 160/12.5 MG DAILY

REACTIONS (2)
  - CONDITION AGGRAVATED [None]
  - HYPERTENSION [None]
